FAERS Safety Report 19706453 (Version 2)
Quarter: 2021Q3

REPORT INFORMATION
  Report Type: Report from Study
  Country: ES (occurrence: ES)
  Receive Date: 20210817
  Receipt Date: 20210830
  Transmission Date: 20211014
  Serious: Yes (Hospitalization)
  Sender: FDA-Public Use
  Company Number: ES-ROCHE-2872790

PATIENT
  Age: 78 Year
  Sex: Male
  Weight: 75 kg

DRUGS (19)
  1. ATEZOLIZUMAB. [Suspect]
     Active Substance: ATEZOLIZUMAB
     Indication: NON-SMALL CELL LUNG CANCER
     Dosage: ON 20/APR/2021, HE RECEIVED MOST RECENT DOSE OF ATEZOLIZUMAB PRIOR TO ONSET OF SERIOUS ADVERSE EVENT
     Route: 041
     Dates: start: 20200425, end: 20210420
  2. XL184 [Suspect]
     Active Substance: CABOZANTINIB
     Route: 048
     Dates: start: 20210722
  3. ACETAMINOPHEN. [Concomitant]
     Active Substance: ACETAMINOPHEN
  4. NATECAL D [Concomitant]
     Active Substance: CALCIUM CARBONATE\CHOLECALCIFEROL
  5. SITAGLIPTIN [Concomitant]
     Active Substance: SITAGLIPTIN
  6. XL184 [Suspect]
     Active Substance: CABOZANTINIB
     Indication: NON-SMALL CELL LUNG CANCER
     Dosage: ON 07/JUL/2021, HE RECEIVED MOST RECENT DOSE OF CABOZANTINIB PRIOR TO ONSET OF SERIOUS ADVERSE EVENT
     Route: 048
     Dates: start: 20200425, end: 20210118
  7. MANIDIPINE [Concomitant]
     Active Substance: MANIDIPINE
  8. FUROSEMIDE. [Concomitant]
     Active Substance: FUROSEMIDE
  9. GLICLAZIDE [Concomitant]
     Active Substance: GLICLAZIDE
  10. LEVOTHYROXINE. [Concomitant]
     Active Substance: LEVOTHYROXINE
  11. SEVREDOL [Concomitant]
     Active Substance: MORPHINE
  12. XL184 [Suspect]
     Active Substance: CABOZANTINIB
     Route: 048
     Dates: start: 20210119, end: 20210707
  13. FENTANYL. [Suspect]
     Active Substance: FENTANYL
     Indication: PRODUCT USED FOR UNKNOWN INDICATION
     Route: 065
  14. FOLIC ACID. [Concomitant]
     Active Substance: FOLIC ACID
  15. SIMVASTATIN. [Concomitant]
     Active Substance: SIMVASTATIN
  16. TINZAPARIN [Concomitant]
     Active Substance: TINZAPARIN
  17. TAMSULOSIN [Concomitant]
     Active Substance: TAMSULOSIN
  18. LOPERAMIDE [Concomitant]
     Active Substance: LOPERAMIDE
  19. DEXAMETHASONE. [Concomitant]
     Active Substance: DEXAMETHASONE

REACTIONS (3)
  - Nausea [Recovered/Resolved]
  - COVID-19 [Recovered/Resolved]
  - Back pain [Not Recovered/Not Resolved]

NARRATIVE: CASE EVENT DATE: 20210707
